FAERS Safety Report 5373513-6 (Version None)
Quarter: 2007Q2

REPORT INFORMATION
  Report Type: 
  Country: None (occurrence: None)
  Receive Date: 20070628
  Receipt Date: 20070626
  Transmission Date: 20071010
  Serious: Yes (Hospitalization)
  Sender: FDA-Public Use
  Company Number: A0660253A

PATIENT
  Age: 73 Year
  Sex: Male

DRUGS (2)
  1. AVANDIA [Suspect]
     Dosage: 2MG PER DAY
     Route: 048
     Dates: start: 20020101, end: 20070515
  2. JANUVIA [Concomitant]

REACTIONS (4)
  - CHEST DISCOMFORT [None]
  - HAEMOPTYSIS [None]
  - HEART RATE INCREASED [None]
  - HYPERTENSION [None]
